FAERS Safety Report 7253916-5 (Version None)
Quarter: 2011Q1

REPORT INFORMATION
  Report Type: 
  Country: None (occurrence: None)
  Receive Date: 20110129
  Receipt Date: 20100312
  Transmission Date: 20110831
  Serious: No
  Sender: FDA-Public Use
  Company Number: US-ABBOTT-10P-163-0632483-00

PATIENT
  Sex: Female
  Weight: 75.364 kg

DRUGS (10)
  1. PRESTIQUE [Concomitant]
     Indication: DEPRESSION
  2. HUMIRA [Suspect]
     Indication: CROHN'S DISEASE
  3. XANAX [Concomitant]
     Indication: ANXIETY
  4. CONCERTA [Concomitant]
     Indication: ATTENTION DEFICIT/HYPERACTIVITY DISORDER
  5. ASPIRIN [Concomitant]
     Indication: PRODUCT USED FOR UNKNOWN INDICATION
  6. PRESTIQUE [Concomitant]
     Indication: ANXIETY
  7. KLONOPIN [Concomitant]
     Indication: ANXIETY
  8. HUMIRA [Suspect]
     Indication: COLITIS ULCERATIVE
     Dates: start: 20080101
  9. FLONASE [Concomitant]
     Indication: HYPERSENSITIVITY
     Route: 045
  10. FOLIC ACID [Concomitant]
     Indication: ANTICOAGULANT THERAPY

REACTIONS (6)
  - MUSCLE SPASMS [None]
  - SINUSITIS [None]
  - ABDOMINAL PAIN [None]
  - RHINORRHOEA [None]
  - COLITIS ULCERATIVE [None]
  - DRUG DOSE OMISSION [None]
